FAERS Safety Report 24564461 (Version 1)
Quarter: 2024Q4

REPORT INFORMATION
  Report Type: Report from Study
  Country: US (occurrence: US)
  Receive Date: 20241030
  Receipt Date: 20241030
  Transmission Date: 20250114
  Serious: Yes (Hospitalization)
  Sender: ROCHE
  Company Number: US-ROCHE-3479091

PATIENT
  Age: 61 Year
  Sex: Female

DRUGS (46)
  1. ACTEMRA [Suspect]
     Active Substance: TOCILIZUMAB
     Indication: Rheumatoid arthritis
     Route: 058
  2. ACTEMRA [Suspect]
     Active Substance: TOCILIZUMAB
     Indication: Rheumatoid arthritis
     Route: 042
     Dates: start: 2021, end: 2023
  3. ACTEMRA [Suspect]
     Active Substance: TOCILIZUMAB
     Indication: Psoriatic arthropathy
     Dosage: IN FATTY TISSUE ON RIGHT THIGH
     Route: 058
     Dates: start: 2023
  4. HERCEPTIN [Suspect]
     Active Substance: TRASTUZUMAB
     Indication: Breast cancer
     Route: 065
  5. ADRIAMYCIN [Suspect]
     Active Substance: DOXORUBICIN HYDROCHLORIDE
     Indication: Breast cancer
     Route: 042
     Dates: start: 2004
  6. ATORVASTATIN [Interacting]
     Active Substance: ATORVASTATIN
     Indication: Blood cholesterol
     Route: 048
  7. ATORVASTATIN [Interacting]
     Active Substance: ATORVASTATIN
     Route: 048
     Dates: start: 2021
  8. ONDANSETRON [Concomitant]
     Active Substance: ONDANSETRON
     Indication: Nausea
     Route: 048
  9. ONDANSETRON [Concomitant]
     Active Substance: ONDANSETRON
     Route: 048
  10. FIORICET [Concomitant]
     Active Substance: ACETAMINOPHEN\BUTALBITAL\CAFFEINE
     Indication: Migraine
     Dosage: 50/325/40 - AS NEEDED
     Route: 048
     Dates: start: 1995
  11. CHOLECALCIFEROL [Concomitant]
     Active Substance: CHOLECALCIFEROL
     Route: 048
  12. CLONAZEPAM [Concomitant]
     Active Substance: CLONAZEPAM
     Route: 048
  13. VITAMIN B12 [Concomitant]
     Active Substance: CYANOCOBALAMIN
     Dosage: 1000 MCG/ML
     Route: 042
  14. FLEXERIL [Concomitant]
     Active Substance: CYCLOBENZAPRINE HYDROCHLORIDE
     Dosage: 2 HS - 1 PRN DURING DAY
     Route: 048
     Dates: start: 2007
  15. DICLOFENAC SODIUM [Concomitant]
     Active Substance: DICLOFENAC SODIUM
     Route: 061
  16. DULOXETINE [Concomitant]
     Active Substance: DULOXETINE
     Route: 048
  17. FAMOTIDINE [Concomitant]
     Active Substance: FAMOTIDINE
     Dosage: NITE
     Route: 048
     Dates: start: 2012
  18. FENTANYL [Concomitant]
     Active Substance: FENTANYL
     Indication: Pain
     Dosage: 50 MCG/HR PER PATCH, ONTO THE SKIN
     Route: 061
  19. FENTANYL [Concomitant]
     Active Substance: FENTANYL
     Dosage: 50 MCG/HR PER PATCH, ONTO THE SKIN
     Dates: start: 20231228
  20. FENTANYL [Concomitant]
     Active Substance: FENTANYL
     Dosage: 50 MCG/HR PER PATCH, ONTO THE SKIN
     Dates: start: 20240127
  21. FLONASE [Concomitant]
     Active Substance: FLUTICASONE PROPIONATE
     Indication: Sinusitis
     Dosage: 1 SPRAY INTO BOTH NOSTRILS DAILY
     Route: 045
  22. FOLVITE [Concomitant]
     Active Substance: FOLIC ACID
     Indication: Neutropenia
     Route: 048
     Dates: start: 2023
  23. PLAQUENIL [Concomitant]
     Active Substance: HYDROXYCHLOROQUINE SULFATE
     Route: 048
     Dates: start: 2010
  24. INSULIN NOS [Concomitant]
     Active Substance: INSULIN NOS
  25. LIDODERM [Concomitant]
     Active Substance: LIDOCAINE
     Indication: Post herpetic neuralgia
     Dosage: UNWRAP AND APPLY 2 PATCHES EVERY 24 HOURS (LEAVE ON FOR 12 HOURS AND OFF FOR 12 HOURS)
  26. MAGNESIUM GLYCINATE [Concomitant]
     Active Substance: MAGNESIUM GLYCINATE
     Route: 048
  27. LOPRESSOR [Concomitant]
     Active Substance: METOPROLOL TARTRATE
  28. MUPIROCIN [Concomitant]
     Active Substance: MUPIROCIN
  29. NATURE-THROID [Concomitant]
     Active Substance: THYROID, PORCINE
  30. NATURE-THROID [Concomitant]
     Active Substance: THYROID, PORCINE
  31. PERCOCET [Concomitant]
     Active Substance: ACETAMINOPHEN\OXYCODONE HYDROCHLORIDE
     Indication: Pain
     Dosage: 10/325 EVERY 6 - 8 HOURS AS NEEDED
     Route: 048
  32. PERCOCET [Concomitant]
     Active Substance: ACETAMINOPHEN\OXYCODONE HYDROCHLORIDE
     Dosage: 10-325 MG
     Route: 048
     Dates: start: 20231228
  33. PERCOCET [Concomitant]
     Active Substance: ACETAMINOPHEN\OXYCODONE HYDROCHLORIDE
     Dosage: 10-325 MG
     Route: 048
     Dates: start: 20240127
  34. PANTOPRAZOLE [Concomitant]
     Active Substance: PANTOPRAZOLE
     Route: 048
     Dates: start: 2012
  35. VEETIDS [Concomitant]
     Active Substance: PENICILLIN V POTASSIUM
     Route: 048
  36. PREDNISONE [Concomitant]
     Active Substance: PREDNISONE
     Route: 048
  37. QUETIAPINE [Concomitant]
     Active Substance: QUETIAPINE
     Route: 048
  38. SPIRONOLACTONE [Concomitant]
     Active Substance: SPIRONOLACTONE
     Indication: Oedema peripheral
     Dosage: MORNING
     Route: 048
     Dates: start: 2015
  39. SUMATRIPTAN [Concomitant]
     Active Substance: SUMATRIPTAN
     Route: 048
  40. SEROQUEL [Concomitant]
     Active Substance: QUETIAPINE FUMARATE
     Dosage: BEDTIME
     Route: 048
     Dates: start: 2020
  41. ARMOUR THYROID [Concomitant]
     Active Substance: THYROID, PORCINE
     Route: 048
  42. IMITREX [Concomitant]
     Active Substance: SUMATRIPTAN SUCCINATE
     Indication: Migraine
     Dosage: CAN TAKE 50-100 MG
     Route: 048
     Dates: start: 1991
  43. VITAMIN D3 [Concomitant]
     Active Substance: CHOLECALCIFEROL
     Indication: Vitamin D decreased
     Route: 048
     Dates: start: 2018
  44. METOPROLOL [Concomitant]
     Active Substance: METOPROLOL
     Route: 048
  45. SUDAFED [Concomitant]
     Active Substance: PSEUDOEPHEDRINE HYDROCHLORIDE
     Indication: Sinusitis
     Route: 048
  46. SUDAFED [Concomitant]
     Active Substance: PSEUDOEPHEDRINE HYDROCHLORIDE
     Indication: Bronchitis

REACTIONS (23)
  - Drug hypersensitivity [Unknown]
  - Pruritus [Recovering/Resolving]
  - Erythema [Not Recovered/Not Resolved]
  - Swelling [Unknown]
  - Rash erythematous [Unknown]
  - Neutropenia [Unknown]
  - Poor venous access [Recovered/Resolved]
  - Illness [Recovering/Resolving]
  - Diarrhoea [Recovered/Resolved]
  - Nausea [Recovered/Resolved]
  - Headache [Recovered/Resolved]
  - Laryngitis [Recovering/Resolving]
  - Ear pain [Recovering/Resolving]
  - Ear discomfort [Recovering/Resolving]
  - Sinusitis [Recovering/Resolving]
  - Bronchitis [Recovering/Resolving]
  - Fatigue [Recovering/Resolving]
  - Respiratory failure [Recovered/Resolved]
  - Oxygen saturation decreased [Recovered/Resolved]
  - Interstitial lung disease [Unknown]
  - Drug interaction [Not Recovered/Not Resolved]
  - Insomnia [Unknown]
  - Injection site reaction [Recovering/Resolving]

NARRATIVE: CASE EVENT DATE: 20050101
